FAERS Safety Report 8391333-5 (Version None)
Quarter: 2012Q2

REPORT INFORMATION
  Report Type: 
  Country: None (occurrence: None)
  Receive Date: 20120521
  Receipt Date: 20120507
  Transmission Date: 20120825
  Serious: Yes (Hospitalization)
  Sender: FDA-Public Use
  Company Number: DSA_57091_2012

PATIENT
  Sex: Male

DRUGS (8)
  1. AMLODIPINE BESYLATE [Concomitant]
  2. FLAGYL [Suspect]
     Indication: PRODUCT USED FOR UNKNOWN INDICATION
     Dosage: (500 MG TID ORAL)
     Route: 048
     Dates: start: 20120301, end: 20120312
  3. RISPERDAL [Concomitant]
  4. DIPROSTONE /00008504/ [Concomitant]
  5. DERMOVAL /00337102/ [Concomitant]
  6. CEFTRIAXON [Suspect]
     Indication: PRODUCT USED FOR UNKNOWN INDICATION
     Dosage: (1 G QD INTRAMUSCULAR)
     Route: 030
     Dates: start: 20120301, end: 20120312
  7. B-12 VITAMIN [Concomitant]
  8. SOLUPRED /00016201/ [Concomitant]

REACTIONS (5)
  - LIVER DISORDER [None]
  - ASTHENIA [None]
  - OEDEMA [None]
  - BLISTER [None]
  - TOXIC SKIN ERUPTION [None]
